FAERS Safety Report 10554153 (Version 2)
Quarter: 2015Q1

REPORT INFORMATION
  Report Type: Spontaneous
  Country: FR (occurrence: FR)
  Receive Date: 20141030
  Receipt Date: 20150109
  Transmission Date: 20150720
  Serious: Yes (Death, Life-Threatening)
  Sender: FDA-Public Use
  Company Number: FR-SA-2014SA147638

PATIENT
  Age: 80 Year
  Sex: Female

DRUGS (11)
  1. METFORMIN HYDROCHLORIDE. [Suspect]
     Active Substance: METFORMIN HYDROCHLORIDE
     Indication: TYPE 2 DIABETES MELLITUS
     Route: 048
     Dates: start: 1996
  2. ESOMEPRAZOLE [Suspect]
     Active Substance: ESOMEPRAZOLE
     Route: 048
  3. TRIATEC [Suspect]
     Active Substance: RAMIPRIL
     Indication: HYPERTENSION
     Route: 048
  4. DUOPLAVIN [Suspect]
     Active Substance: ASPIRIN\CLOPIDOGREL
     Indication: ACUTE CORONARY SYNDROME
     Route: 048
  5. NEO MERCAZOLE [Suspect]
     Active Substance: CARBIMAZOLE
     Indication: HYPERTHYROIDISM
     Route: 048
  6. LORAZEPAM. [Suspect]
     Active Substance: LORAZEPAM
     Route: 048
  7. EFFERALGAN [Suspect]
     Active Substance: ACETAMINOPHEN
     Dosage: DOSE:3-4 DF DAILY
     Route: 048
  8. LASILIX [Suspect]
     Active Substance: FUROSEMIDE
     Indication: HYPERTENSION
     Route: 048
  9. CREON [Suspect]
     Active Substance: PANCRELIPASE AMYLASE\PANCRELIPASE LIPASE\PANCRELIPASE PROTEASE
     Indication: PANCREATITIS
     Route: 048
  10. BISOCE [Suspect]
     Active Substance: BISOPROLOL
     Indication: HYPERTENSION
     Dosage: STRENGTH: 2.5 MG
     Route: 048
  11. TAHOR [Suspect]
     Active Substance: ATORVASTATIN CALCIUM
     Indication: HYPERCHOLESTEROLAEMIA
     Route: 048

REACTIONS (13)
  - Lactic acidosis [Fatal]
  - Abdominal pain [Unknown]
  - Multi-organ failure [None]
  - Diarrhoea [Unknown]
  - Prescribed overdose [None]
  - Hyperkalaemia [Fatal]
  - Acute kidney injury [Fatal]
  - Gastrointestinal disorder [Unknown]
  - Vomiting [Unknown]
  - Haemodialysis [None]
  - Drug level above therapeutic [None]
  - Hepatic failure [Fatal]
  - Blood pressure decreased [None]

NARRATIVE: CASE EVENT DATE: 20141005
